FAERS Safety Report 9059283 (Version 2)
Quarter: 2013Q1

REPORT INFORMATION
  Report Type: Spontaneous
  Country: DK (occurrence: DK)
  Receive Date: 20130211
  Receipt Date: 20130314
  Transmission Date: 20140127
  Serious: Yes (Hospitalization)
  Sender: FDA-Public Use
  Company Number: DK-ELI_LILLY_AND_COMPANY-DK201302000226

PATIENT
  Age: 53 None
  Sex: Male
  Weight: 100 kg

DRUGS (3)
  1. EFIENT [Suspect]
     Indication: ACUTE CORONARY SYNDROME
     Dosage: 60 MG, SINGLE
     Route: 048
     Dates: start: 20101020, end: 20101020
  2. EFIENT [Suspect]
     Dosage: 10 MG, QD
     Route: 048
     Dates: start: 20101021, end: 20120601
  3. ACETYLSALICYLIC ACID [Concomitant]

REACTIONS (2)
  - Angina pectoris [Recovered/Resolved]
  - Coronary artery restenosis [Unknown]
